FAERS Safety Report 12797403 (Version 1)
Quarter: 2016Q3

REPORT INFORMATION
  Report Type: Report from Study
  Country: BR (occurrence: BR)
  Receive Date: 20160930
  Receipt Date: 20160930
  Transmission Date: 20161109
  Serious: Yes (Hospitalization, Other)
  Sender: FDA-Public Use
  Company Number: PHHY2016BR133442

PATIENT
  Sex: Male
  Weight: 90 kg

DRUGS (1)
  1. EXELON PATCH [Suspect]
     Active Substance: RIVASTIGMINE
     Indication: NERVOUS SYSTEM DISORDER
     Dosage: 4.6 MG, QD PATCH 5 (CM2)
     Route: 062

REACTIONS (8)
  - Osteomyelitis [Unknown]
  - Ischaemia [Not Recovered/Not Resolved]
  - Pneumonia [Unknown]
  - Wound [Unknown]
  - Product use issue [Unknown]
  - Mobility decreased [Unknown]
  - Thrombosis [Unknown]
  - Eating disorder [Unknown]
